FAERS Safety Report 10067464 (Version 1)
Quarter: 2014Q2

REPORT INFORMATION
  Report Type: Spontaneous
  Country: ES (occurrence: None)
  Receive Date: 20140407
  Receipt Date: 20140407
  Transmission Date: 20141212
  Serious: Yes (Other)
  Sender: FDA-Public Use
  Company Number: ES-015121

PATIENT
  Age: 38 Year
  Sex: Female

DRUGS (1)
  1. MENOPUR [Suspect]
     Indication: IN VITRO FERTILISATION
     Dosage: 75 UI DIA
     Route: 058
     Dates: start: 20140224, end: 20140227

REACTIONS (3)
  - Dyspnoea [None]
  - Throat irritation [None]
  - Pharyngeal oedema [None]
